FAERS Safety Report 17928202 (Version 1)
Quarter: 2020Q2

REPORT INFORMATION
  Report Type: Report from Study
  Country: None (occurrence: US)
  Receive Date: 20200623
  Receipt Date: 20200623
  Transmission Date: 20200714
  Serious: Yes (Other)
  Sender: FDA-Public Use
  Company Number: US-ABBVIE-20K-163-3452078-00

PATIENT
  Age: 74 Year
  Sex: Male

DRUGS (1)
  1. VENCLEXTA [Suspect]
     Active Substance: VENETOCLAX
     Indication: ACUTE MYELOID LEUKAEMIA
     Route: 048
     Dates: start: 20200614

REACTIONS (3)
  - Transfusion [Recovering/Resolving]
  - Rhinorrhoea [Recovering/Resolving]
  - Platelet transfusion [Recovering/Resolving]

NARRATIVE: CASE EVENT DATE: 202006
